FAERS Safety Report 6887307-3 (Version None)
Quarter: 2010Q3

REPORT INFORMATION
  Report Type: 
  Country: None (occurrence: None)
  Receive Date: 20100730
  Receipt Date: 20090624
  Transmission Date: 20110219
  Serious: No
  Sender: FDA-Public Use
  Company Number: A0793531A

PATIENT
  Age: 57 Year
  Sex: Female

DRUGS (4)
  1. SUMATRIPTAN SUCCINATE [Suspect]
     Indication: MIGRAINE
     Dosage: 1TAB AS REQUIRED
     Route: 048
     Dates: start: 20090610, end: 20090610
  2. SYNTHROID [Concomitant]
  3. PROZAC [Concomitant]
  4. ADIPEX [Concomitant]

REACTIONS (1)
  - DRUG INEFFECTIVE [None]
